FAERS Safety Report 5080239-5 (Version None)
Quarter: 2006Q3

REPORT INFORMATION
  Report Type: 
  Country: None (occurrence: None)
  Receive Date: 20060720
  Receipt Date: 20050815
  Transmission Date: 20061208
  Serious: Yes (Hospitalization, Other)
  Sender: FDA-Public Use
  Company Number: 2005116210

PATIENT
  Age: 45 Year
  Sex: Female
  Weight: 58.9676 kg

DRUGS (2)
  1. CELEBREX [Suspect]
     Indication: CERVICOBRACHIAL SYNDROME
     Dosage: 200 MG (200 MG, 1 IN 1 D), UNKNOWN
     Dates: start: 20040101, end: 20050501
  2. CONTRACEPTIVE, UNSPECIFIED (CONTRACEPTIVE, UNSPECIFIED) [Concomitant]

REACTIONS (1)
  - IRON DEFICIENCY ANAEMIA [None]
